FAERS Safety Report 11052381 (Version 1)
Quarter: 2015Q2

REPORT INFORMATION
  Report Type: Report from Study
  Country: BR (occurrence: BR)
  Receive Date: 20150421
  Receipt Date: 20150421
  Transmission Date: 20150821
  Serious: Yes (Hospitalization)
  Sender: FDA-Public Use
  Company Number: PHHY2014BR138283

PATIENT
  Sex: Female

DRUGS (5)
  1. EXELON PATCH [Suspect]
     Active Substance: RIVASTIGMINE
     Dosage: 9.5 MG (PATCH 10CM2), QD
     Route: 062
  2. EXELON [Suspect]
     Active Substance: RIVASTIGMINE TARTRATE
     Dosage: 3 DF (3 CAPSULES OF 4.5MG), QD
     Route: 048
  3. EXELON PATCH [Suspect]
     Active Substance: RIVASTIGMINE
     Indication: DEMENTIA
     Dosage: 4.6 MG (PATCH 5CM2), QD
     Route: 062
  4. EXELON [Suspect]
     Active Substance: RIVASTIGMINE TARTRATE
     Indication: DEMENTIA
     Dosage: 1 DF (1 CAPSULE OF 1.5MG), BID (IN THE MORNING AND AT NIGHT)
     Route: 048
  5. SYNTHROID [Concomitant]
     Active Substance: LEVOTHYROXINE SODIUM
     Indication: HYPOTHYROIDISM
     Dosage: 1 DF (1 TABLET), QD
     Route: 065

REACTIONS (11)
  - Femur fracture [Unknown]
  - Fall [Unknown]
  - Application site erythema [Recovering/Resolving]
  - Coordination abnormal [Unknown]
  - Product adhesion issue [Unknown]
  - Weight decreased [Not Recovered/Not Resolved]
  - Hyperaesthesia [Not Recovered/Not Resolved]
  - Nausea [Unknown]
  - Skin irritation [Unknown]
  - Application site reaction [Not Recovered/Not Resolved]
  - Abdominal discomfort [Unknown]

NARRATIVE: CASE EVENT DATE: 2014
